FAERS Safety Report 21491237 (Version 1)
Quarter: 2022Q4

REPORT INFORMATION
  Report Type: Spontaneous
  Country: US (occurrence: US)
  Receive Date: 20221021
  Receipt Date: 20221021
  Transmission Date: 20230113
  Serious: No
  Sender: FDA-Public Use
  Company Number: US-BRISTOL-MYERS SQUIBB COMPANY-2022-124620

PATIENT
  Age: 64 Year
  Sex: Female
  Weight: 101.6 kg

DRUGS (1)
  1. REVLIMID [Suspect]
     Active Substance: LENALIDOMIDE
     Indication: Plasma cell myeloma in remission
     Dosage: D 1-21 Q28 DAYS
     Route: 048
     Dates: start: 2019

REACTIONS (2)
  - Urinary tract infection [Unknown]
  - Blood potassium decreased [Unknown]
